FAERS Safety Report 10355432 (Version 2)
Quarter: 2014Q3

REPORT INFORMATION
  Report Type: Spontaneous
  Country: ES (occurrence: ES)
  Receive Date: 20140731
  Receipt Date: 20140731
  Transmission Date: 20150326
  Serious: Yes (Hospitalization, Other)
  Sender: FDA-Public Use
  Company Number: ES-ABBVIE-14P-144-1252009-00

PATIENT
  Age: 60 Year
  Sex: Male

DRUGS (3)
  1. HUMIRA [Suspect]
     Active Substance: ADALIMUMAB
     Indication: CROHN^S DISEASE
     Route: 058
     Dates: start: 20131212, end: 20131212
  2. HUMIRA [Suspect]
     Active Substance: ADALIMUMAB
     Route: 058
     Dates: end: 20140314
  3. HUMIRA [Suspect]
     Active Substance: ADALIMUMAB
     Route: 058
     Dates: start: 20131226, end: 20131226

REACTIONS (13)
  - Alanine aminotransferase increased [Unknown]
  - Blood magnesium increased [Unknown]
  - Blood cholesterol decreased [Unknown]
  - Blood triglycerides decreased [Unknown]
  - Blood sodium increased [Unknown]
  - Cardiac arrest [Recovered/Resolved]
  - Blood creatine phosphokinase increased [Unknown]
  - Troponin increased [Unknown]
  - Amnesia [Unknown]
  - Pneumonia pseudomonal [Unknown]
  - Ischaemic cardiomyopathy [Unknown]
  - Myocardial infarction [Unknown]
  - Blood calcium decreased [Unknown]

NARRATIVE: CASE EVENT DATE: 2014
